FAERS Safety Report 5747723-X (Version None)
Quarter: 2008Q2

REPORT INFORMATION
  Report Type: 
  Country: None (occurrence: None)
  Receive Date: 20080523
  Receipt Date: 20080519
  Transmission Date: 20081010
  Serious: Yes (Life-Threatening)
  Sender: FDA-Public Use
  Company Number: FR-ASTRAZENECA-2008CG00731

PATIENT
  Age: 26353 Day
  Sex: Female

DRUGS (8)
  1. DIPRIVAN [Suspect]
     Indication: INDUCTION OF ANAESTHESIA
     Route: 042
     Dates: start: 20080326, end: 20080326
  2. CELOCURINE [Suspect]
     Indication: INDUCTION OF ANAESTHESIA
     Route: 042
     Dates: start: 20080326, end: 20080326
  3. SUFENTA [Suspect]
     Indication: INDUCTION OF ANAESTHESIA
     Route: 042
     Dates: start: 20080326, end: 20080326
  4. FEMARA [Concomitant]
  5. SPIRONOLACTONE [Concomitant]
  6. NOCTRAN [Concomitant]
  7. TERCIAN [Concomitant]
  8. CYMBALTA [Concomitant]

REACTIONS (1)
  - ANAPHYLACTIC SHOCK [None]
